FAERS Safety Report 9476192 (Version 2)
Quarter: 2013Q3

REPORT INFORMATION
  Report Type: Report from Study
  Country: US (occurrence: US)
  Receive Date: 20130826
  Receipt Date: 20130826
  Transmission Date: 20140515
  Serious: Yes (Hospitalization, Other)
  Sender: FDA-Public Use
  Company Number: US-SANOFI-AVENTIS-2013SA062872

PATIENT
  Age: 51 Year
  Sex: Female

DRUGS (1)
  1. AUBAGIO [Suspect]
     Indication: MULTIPLE SCLEROSIS
     Route: 048
     Dates: start: 20130316

REACTIONS (5)
  - Unevaluable event [Recovered/Resolved]
  - Multiple sclerosis relapse [Recovered/Resolved]
  - Dry skin [Unknown]
  - Paraesthesia [Unknown]
  - Condition aggravated [Unknown]
